FAERS Safety Report 9565662 (Version 1)
Quarter: 2013Q3

REPORT INFORMATION
  Report Type: Spontaneous
  Country: US (occurrence: US)
  Receive Date: 20130930
  Receipt Date: 20130930
  Transmission Date: 20140515
  Serious: Yes (Life-Threatening, Hospitalization)
  Sender: FDA-Public Use
  Company Number: US-ASTRAZENECA-2013SE63933

PATIENT
  Age: 65 Year
  Sex: Female

DRUGS (14)
  1. LISINOPRIL [Suspect]
     Route: 048
  2. ASPIRIN [Suspect]
  3. ASPIRIN [Suspect]
  4. MOXIFLOXACIN [Concomitant]
     Indication: UPPER RESPIRATORY TRACT INFECTION
  5. AMLODIPINE [Concomitant]
  6. METOPROLOL TARTRATE [Concomitant]
  7. HYDROCHLOROTHIAZIDE [Concomitant]
  8. SIMVASTATIN [Concomitant]
  9. GLIPIZIDE [Concomitant]
     Dosage: 5 MG BEFORE BREAKFAST
  10. BUPROPION [Concomitant]
  11. ALPRAZOLAM [Concomitant]
  12. METHOCARBAMOL [Concomitant]
  13. IBUPROFEN [Concomitant]
     Dosage: 600 MG THREE TIMES DAILY AS NEEDED
  14. ALBUTEROL [Concomitant]
     Dosage: 2 PUFFS EVERY 6 HOURS AS NEEDED

REACTIONS (6)
  - Angioedema [Unknown]
  - Aphasia [Unknown]
  - Somnolence [Unknown]
  - Mental status changes [Unknown]
  - Haemorrhagic diathesis [Unknown]
  - Intentional drug misuse [Unknown]
